FAERS Safety Report 20913066 (Version 4)
Quarter: 2022Q3

REPORT INFORMATION
  Report Type: Report from Study
  Country: MX (occurrence: MX)
  Receive Date: 20220603
  Receipt Date: 20220725
  Transmission Date: 20221027
  Serious: Yes (Disabling, Other)
  Sender: FDA-Public Use
  Company Number: MX-NOVARTISPH-NVSC2022MX127692

PATIENT
  Sex: Female

DRUGS (1)
  1. TASIGNA [Suspect]
     Active Substance: NILOTINIB
     Indication: Chronic myeloid leukaemia
     Dosage: UNK
     Route: 048

REACTIONS (15)
  - Eye movement disorder [Unknown]
  - Migraine [Unknown]
  - Malaise [Unknown]
  - Product availability issue [Unknown]
  - Diabetes mellitus [Unknown]
  - Chronic myeloid leukaemia recurrent [Unknown]
  - Contusion [Not Recovered/Not Resolved]
  - Fibromyalgia [Unknown]
  - Illness [Unknown]
  - Respiratory disorder [Unknown]
  - Dengue fever [Unknown]
  - Cytogenetic analysis abnormal [Unknown]
  - Mood altered [Unknown]
  - General physical health deterioration [Unknown]
  - White blood cell disorder [Unknown]
